FAERS Safety Report 4991817-3 (Version None)
Quarter: 2006Q2

REPORT INFORMATION
  Report Type: 
  Country: None (occurrence: None)
  Receive Date: 20060502
  Receipt Date: 20060421
  Transmission Date: 20061013
  Serious: Yes (Death)
  Sender: FDA-Public Use
  Company Number: J081-002-002205

PATIENT
  Age: 82 Year
  Sex: Female

DRUGS (8)
  1. ARICEPT [Suspect]
     Indication: DEMENTIA
     Dosage: 3 MG, 1 IN 1 D, ORAL; 5 MG, 1 IN 1 D, ORAL
     Route: 048
     Dates: start: 20060130, end: 20060205
  2. ARICEPT [Suspect]
     Indication: DEMENTIA
     Dosage: 3 MG, 1 IN 1 D, ORAL; 5 MG, 1 IN 1 D, ORAL
     Route: 048
     Dates: start: 20060206, end: 20060303
  3. SYMMETREL [Concomitant]
  4. PAXIL [Concomitant]
  5. DOPS (DROXIDOPA) [Concomitant]
  6. DIGOXIN [Concomitant]
  7. LANSOPRAZOLE [Concomitant]
  8. SUCRALFATE [Concomitant]

REACTIONS (11)
  - ANOREXIA [None]
  - BEDRIDDEN [None]
  - BRADYCARDIA [None]
  - CARDIAC FAILURE ACUTE [None]
  - DYSPNOEA [None]
  - EXTRAPYRAMIDAL DISORDER [None]
  - GASTRIC ULCER HAEMORRHAGE [None]
  - MELAENA [None]
  - SHOCK [None]
  - SUDDEN DEATH [None]
  - TREMOR [None]
